FAERS Safety Report 14005236 (Version 1)
Quarter: 2017Q3

REPORT INFORMATION
  Report Type: Report from Study
  Country: IT (occurrence: IT)
  Receive Date: 20170922
  Receipt Date: 20170922
  Transmission Date: 20171128
  Serious: Yes (Hospitalization, Other)
  Sender: FDA-Public Use
  Company Number: IT-TEVA-807845ACC

PATIENT
  Age: 23 Year
  Sex: Female
  Weight: 90 kg

DRUGS (3)
  1. RIVOTRIL - 0,5MG COMPRESSE [Concomitant]
     Indication: PRODUCT USED FOR UNKNOWN INDICATION
  2. QUETIAPINE. [Suspect]
     Active Substance: QUETIAPINE
     Indication: PSYCHOTIC DISORDER
     Route: 048
     Dates: start: 20170529, end: 20170529
  3. EUTIMIL - 20 MG COMPRESSE RIVESTITE CON FILM [Concomitant]
     Indication: PRODUCT USED FOR UNKNOWN INDICATION

REACTIONS (8)
  - Loss of consciousness [Recovered/Resolved]
  - Electrocardiogram QT prolonged [Recovered/Resolved]
  - Drug abuse [Recovered/Resolved]
  - Sinus tachycardia [Recovered/Resolved]
  - Conversion disorder [Unknown]
  - Acute respiratory failure [Recovered/Resolved]
  - Pneumonia aspiration [Recovered/Resolved]
  - Schizotypal personality disorder [Unknown]

NARRATIVE: CASE EVENT DATE: 20170529
